FAERS Safety Report 10482508 (Version 3)
Quarter: 2014Q4

REPORT INFORMATION
  Report Type: Spontaneous
  Country: US (occurrence: US)
  Receive Date: 20140929
  Receipt Date: 20141230
  Transmission Date: 20150528
  Serious: Yes (Other)
  Sender: FDA-Public Use
  Company Number: US-PFIZER INC-2014267224

PATIENT
  Age: 59 Year
  Sex: Male
  Weight: 108.84 kg

DRUGS (5)
  1. NEURONTIN [Suspect]
     Active Substance: GABAPENTIN
     Indication: FIBROMYALGIA
     Dosage: UNK
     Dates: start: 200806, end: 200807
  2. NAPROXEN. [Concomitant]
     Active Substance: NAPROXEN
     Indication: ARTHRITIS
     Dosage: 250 MG, 2X/DAY
  3. NEURONTIN [Suspect]
     Active Substance: GABAPENTIN
     Indication: BACK PAIN
  4. NEURONTIN [Suspect]
     Active Substance: GABAPENTIN
     Indication: NEURALGIA
  5. SUBOXONE [Concomitant]
     Active Substance: BUPRENORPHINE HYDROCHLORIDE\NALOXONE HYDROCHLORIDE
     Indication: DRUG DEPENDENCE
     Dosage: 1 DF (ONE FILM) , 2X/DAY

REACTIONS (2)
  - Drug intolerance [Unknown]
  - Suicidal ideation [Recovered/Resolved]

NARRATIVE: CASE EVENT DATE: 200806
